FAERS Safety Report 18585686 (Version 3)
Quarter: 2021Q2

REPORT INFORMATION
  Report Type: Report from Study
  Country: US (occurrence: US)
  Receive Date: 20201207
  Receipt Date: 20210517
  Transmission Date: 20210717
  Serious: No
  Sender: FDA-Public Use
  Company Number: US-TAKEDA-2020TUS054595

PATIENT
  Age: 74 Year
  Sex: Female
  Weight: 72 kg

DRUGS (27)
  1. HUMAN NORMAL IMMUNOGLOBULIN; LIQUID [Suspect]
     Active Substance: HUMAN IMMUNOGLOBULIN G
     Indication: ILLNESS
     Dosage: 1000 MILLIGRAM/KILOGRAM, Q8WEEKS
     Route: 042
     Dates: start: 20200620
  2. DIPHENHYDRAMINE. [Concomitant]
     Active Substance: DIPHENHYDRAMINE
  3. ASPIRIN (E.C.) [Concomitant]
     Active Substance: ASPIRIN
  4. PNEUMOVAX 23 [Concomitant]
     Active Substance: PNEUMOCOCCAL VACCINE, POLYVALENT 23
  5. IRON [Concomitant]
     Active Substance: IRON
  6. FLUBLOK QUADRIVALENT NOS [Concomitant]
     Active Substance: INFLUENZA VIRUS VACCINE
  7. ACETAMINOPHEN. [Concomitant]
     Active Substance: ACETAMINOPHEN
  8. HEPARIN [Concomitant]
     Active Substance: HEPARIN SODIUM
  9. METOPROLOL. [Concomitant]
     Active Substance: METOPROLOL
  10. GLIMEPIRIDE. [Concomitant]
     Active Substance: GLIMEPIRIDE
  11. SODIUM CHLORIDE. [Concomitant]
     Active Substance: SODIUM CHLORIDE
  12. SPIRONOLACTONE. [Concomitant]
     Active Substance: SPIRONOLACTONE
  13. METFORMIN [Concomitant]
     Active Substance: METFORMIN HYDROCHLORIDE
  14. TYLENOL 8HR [Concomitant]
     Active Substance: ACETAMINOPHEN
  15. LIDOCAINE. [Concomitant]
     Active Substance: LIDOCAINE
  16. EPINEPHRINE. [Concomitant]
     Active Substance: EPINEPHRINE
  17. CHOLECALCIFEROL [Concomitant]
     Active Substance: CHOLECALCIFEROL
  18. CELLCEPT [Concomitant]
     Active Substance: MYCOPHENOLATE MOFETIL\MYCOPHENOLATE MOFETIL HYDROCHLORIDE
  19. FLUOCINOLONE [Concomitant]
     Active Substance: FLUOCINOLONE
  20. NITROGLYCERIN. [Concomitant]
     Active Substance: NITROGLYCERIN
  21. AMLODIPINE [Concomitant]
     Active Substance: AMLODIPINE BESYLATE
  22. HUMAN NORMAL IMMUNOGLOBULIN; LIQUID [Suspect]
     Active Substance: HUMAN IMMUNOGLOBULIN G
     Indication: POLYMYOSITIS
     Dosage: 50 MILLIGRAM, Q6WEEKS
     Route: 065
     Dates: start: 20200620
  23. NORMAL SALINE [Concomitant]
     Active Substance: SODIUM CHLORIDE
  24. OMEPRAZOLE. [Concomitant]
     Active Substance: OMEPRAZOLE
  25. LOSARTAN. [Concomitant]
     Active Substance: LOSARTAN
  26. LANSOPRAZOLE. [Concomitant]
     Active Substance: LANSOPRAZOLE
  27. FISH OIL [Concomitant]
     Active Substance: FISH OIL

REACTIONS (3)
  - COVID-19 [Unknown]
  - Headache [Unknown]
  - Anaemia [Unknown]

NARRATIVE: CASE EVENT DATE: 20201112
